FAERS Safety Report 7934746-5 (Version None)
Quarter: 2011Q4

REPORT INFORMATION
  Report Type: 
  Country: None (occurrence: None)
  Receive Date: 20111122
  Receipt Date: 20111107
  Transmission Date: 20120403
  Serious: Yes (Death, Hospitalization)
  Sender: FDA-Public Use
  Company Number: US-WATSON-2011-19315

PATIENT
  Age: 68 Year
  Sex: Male

DRUGS (3)
  1. AMIODARONE HCL [Suspect]
     Indication: PRODUCT USED FOR UNKNOWN INDICATION
     Dosage: 400 MG, TID
     Route: 065
  2. COLCHICINE [Suspect]
     Indication: ARTHRALGIA
     Dosage: 1 MG, SINGLE
     Route: 042
  3. COLCHICINE [Suspect]
     Dosage: 1.2 MG ORALLY Q2-4H W/TOTAL DOSE 11.8 MG OVER 17 H
     Route: 048

REACTIONS (5)
  - THROMBOCYTOPENIA [None]
  - CARDIAC ARREST [None]
  - TOXICITY TO VARIOUS AGENTS [None]
  - DRUG INTERACTION [None]
  - RENAL FAILURE [None]
